FAERS Safety Report 13102402 (Version 1)
Quarter: 2017Q1

REPORT INFORMATION
  Report Type: Spontaneous
  Country: US (occurrence: US)
  Receive Date: 20170110
  Receipt Date: 20170110
  Transmission Date: 20170428
  Serious: No
  Sender: FDA-Public Use
  Company Number: US-ALLERGAN-1659205US

PATIENT
  Age: 71 Year
  Sex: Female

DRUGS (5)
  1. LOSARTAN POTASSIUM. [Concomitant]
     Active Substance: LOSARTAN POTASSIUM
     Indication: HYPERTENSION
     Dosage: 50 MG, QD
     Route: 048
  2. EVISTA [Concomitant]
     Active Substance: RALOXIFENE HYDROCHLORIDE
     Indication: OSTEOPOROSIS
     Dosage: 60 MG, QD
     Route: 048
  3. PREDNISOLONE UNK [Suspect]
     Active Substance: PREDNISOLONE
     Indication: CORNEAL TRANSPLANT
     Dosage: 2 GTT, UNK
     Route: 047
     Dates: start: 201512
  4. PREDNISOLONE UNK [Suspect]
     Active Substance: PREDNISOLONE
     Dosage: UNK
     Route: 047
     Dates: start: 201407
  5. PREDNISOLONE UNK [Suspect]
     Active Substance: PREDNISOLONE
     Dosage: UNK
     Route: 047
     Dates: start: 20140325

REACTIONS (2)
  - Drug dose omission [Unknown]
  - Corneal disorder [Unknown]

NARRATIVE: CASE EVENT DATE: 201512
